FAERS Safety Report 6781605-X (Version None)
Quarter: 2010Q2

REPORT INFORMATION
  Report Type: 
  Country: None (occurrence: None)
  Receive Date: 20100615
  Receipt Date: 20100603
  Transmission Date: 20101027
  Serious: Yes (Other)
  Sender: FDA-Public Use
  Company Number: 2010060036

PATIENT
  Age: 18 Year
  Sex: Female

DRUGS (10)
  1. CESAMET [Suspect]
     Dosage: 2 DOSAGE FORMS) ORAL
     Route: 048
  2. MORPHINE HYDROCHLORIDE (MORPHINE HC1) [Concomitant]
     Dosage: 180 MG (60 MG, 1 IN 8 HR), ORAL
     Route: 048
  3. AMITRIPTYLINE HYDROCHLORIDE [Concomitant]
  4. CISPLATIN [Concomitant]
  5. DOCUSATE SODIUM (DOCUSATE SODIUM) [Concomitant]
  6. EMEND [Concomitant]
  7. GABAPENTIN [Concomitant]
  8. KETOTIFEN (KETOIFEN) [Concomitant]
  9. LANSOPRAZOLE [Concomitant]
  10. ONDASETRON (ONDANSETRON) [Concomitant]

REACTIONS (5)
  - DISORIENTATION [None]
  - MIOSIS [None]
  - NARCOTIC INTOXICATION [None]
  - PO2 DECREASED [None]
  - RESPIRATORY RATE DECREASED [None]
